FAERS Safety Report 5343800-6 (Version None)
Quarter: 2007Q2

REPORT INFORMATION
  Report Type: 
  Country: None (occurrence: None)
  Receive Date: 20070604
  Receipt Date: 20070522
  Transmission Date: 20071010
  Serious: Yes (Death)
  Sender: FDA-Public Use
  Company Number: US-AMGEN-US225845

PATIENT
  Sex: Female

DRUGS (3)
  1. PROCRIT [Suspect]
     Indication: ANAEMIA OF MALIGNANT DISEASE
     Dates: start: 20070201, end: 20070504
  2. TAMOXIFEN [Concomitant]
  3. SYNTHROID [Concomitant]

REACTIONS (3)
  - CEREBRAL HAEMORRHAGE [None]
  - DEATH [None]
  - METASTASES TO CENTRAL NERVOUS SYSTEM [None]
